FAERS Safety Report 8229993-1 (Version None)
Quarter: 2012Q1

REPORT INFORMATION
  Report Type: 
  Country: None (occurrence: None)
  Receive Date: 20120323
  Receipt Date: 20120316
  Transmission Date: 20120608
  Serious: No
  Sender: FDA-Public Use
  Company Number: US-BIOGENIDEC-2012BI009894

PATIENT
  Sex: Female

DRUGS (2)
  1. TYSABRI [Suspect]
     Indication: MULTIPLE SCLEROSIS
     Route: 042
     Dates: start: 20100802
  2. AMPYRA [Concomitant]
     Indication: GAIT DISTURBANCE

REACTIONS (3)
  - FALL [None]
  - MULTIPLE FRACTURES [None]
  - MULTIPLE SCLEROSIS RELAPSE [None]
